FAERS Safety Report 8061882-8 (Version None)
Quarter: 2012Q1

REPORT INFORMATION
  Report Type: 
  Country: None (occurrence: None)
  Receive Date: 20120123
  Receipt Date: 20120110
  Transmission Date: 20120608
  Serious: Yes (Life-Threatening, Hospitalization, Other)
  Sender: FDA-Public Use
  Company Number: ES-ELI_LILLY_AND_COMPANY-ES201201002573

PATIENT
  Age: 62 Year
  Sex: Female

DRUGS (2)
  1. RALOXIFENE [Suspect]
     Indication: MENOPAUSE
     Dosage: 60 MG, QD
     Route: 048
     Dates: start: 20040101, end: 20090205
  2. RALOXIFENE [Suspect]
     Dosage: 60 MG, QD
     Dates: start: 20090214, end: 20090415

REACTIONS (5)
  - DYSPNOEA [None]
  - INTENTIONAL DRUG MISUSE [None]
  - PULMONARY EMBOLISM [None]
  - EPIGASTRIC DISCOMFORT [None]
  - LUNG DISORDER [None]
